FAERS Safety Report 17214136 (Version 7)
Quarter: 2021Q3

REPORT INFORMATION
  Report Type: Spontaneous
  Country: US (occurrence: US)
  Receive Date: 20191230
  Receipt Date: 20210816
  Transmission Date: 20211014
  Serious: No
  Sender: FDA-Public Use
  Company Number: US-PFIZER INC-2019556536

PATIENT
  Age: 83 Year
  Sex: Female
  Weight: 75 kg

DRUGS (4)
  1. IBRANCE [Suspect]
     Active Substance: PALBOCICLIB
     Dosage: 125 MG, CYCLIC (DAY 1?21 EVERY 18 HRS)
  2. IBRANCE [Suspect]
     Active Substance: PALBOCICLIB
     Indication: BREAST CANCER METASTATIC
     Dosage: 100 MG, CYCLIC (TAKE 1 CAPSULE 100 MG BY MOUTH DAILY FOR 21 DOSES, REPEAT EVERY 28 DAYS)
     Route: 048
  3. IBRANCE [Suspect]
     Active Substance: PALBOCICLIB
     Dosage: 75 MG, CYCLIC (1 CAPSULE 75MG, BY MOUTH DAILY FOR 21 DOSES, REPEAT EVERY 28 DAYS)
     Route: 048
  4. LETROZOLE. [Concomitant]
     Active Substance: LETROZOLE
     Indication: BREAST CANCER METASTATIC
     Dosage: 2.5 MG, DAILY
     Route: 048

REACTIONS (2)
  - Off label use [Unknown]
  - Decreased immune responsiveness [Unknown]
